FAERS Safety Report 21017440 (Version 1)
Quarter: 2022Q3

REPORT INFORMATION
  Report Type: Report from Study
  Country: EG (occurrence: EG)
  Receive Date: 20220628
  Receipt Date: 20220628
  Transmission Date: 20221027
  Serious: Yes (Hospitalization, Other)
  Sender: FDA-Public Use
  Company Number: EG-NOVARTISPH-NVSC2022EG145004

PATIENT
  Age: 60 Year
  Sex: Male

DRUGS (7)
  1. ENTRESTO [Suspect]
     Active Substance: SACUBITRIL\VALSARTAN
     Indication: Cardiac failure
     Dosage: 1 DOSAGE FORM, BID (2019 WITH NON COMPLIANCE)
     Route: 065
     Dates: start: 2019
  2. ENTRESTO [Suspect]
     Active Substance: SACUBITRIL\VALSARTAN
     Dosage: 1 DOSAGE FORM, BID (NON COMPLIANCE AT THE BEGINNING OF 2021) (THE PATIENT BECAME COMPLIANT TO THE ME
     Route: 065
     Dates: start: 2021
  3. AGGREX [Concomitant]
     Indication: Anticoagulant therapy
     Dosage: 1 DOSAGE FORM, QD
     Route: 065
     Dates: start: 2019
  4. EXAMIDE [Concomitant]
     Indication: Pulmonary oedema
     Dosage: 1 DOSAGE FORM, QD
     Route: 065
     Dates: start: 2019
  5. TORSAMOLEX [Concomitant]
     Indication: Pulmonary oedema
     Dosage: 1 DOSAGE FORM, QD
     Route: 065
     Dates: start: 2019
  6. LIPICOLE [Concomitant]
     Indication: Prophylaxis
     Dosage: 1 DOSAGE FORM, QD
     Route: 065
     Dates: start: 2019
  7. ATORVASTATIN CALCIUM [Concomitant]
     Active Substance: ATORVASTATIN CALCIUM
     Indication: Prophylaxis
     Dosage: 1 DOSAGE FORM, QD
     Route: 065
     Dates: start: 2019

REACTIONS (3)
  - Hypotension [Recovering/Resolving]
  - Ejection fraction decreased [Not Recovered/Not Resolved]
  - Helicobacter gastritis [Recovered/Resolved]

NARRATIVE: CASE EVENT DATE: 20191101
